FAERS Safety Report 7928817-7 (Version None)
Quarter: 2011Q4

REPORT INFORMATION
  Report Type: 
  Country: None (occurrence: None)
  Receive Date: 20111118
  Receipt Date: 20110816
  Transmission Date: 20120403
  Serious: No
  Sender: FDA-Public Use
  Company Number: US-BAYER-2011-077961

PATIENT
  Sex: Female

DRUGS (6)
  1. IBUPROFEN (ADVIL) [Suspect]
     Indication: PAIN
  2. ACETAMINOPHEN [Suspect]
     Indication: PAIN
  3. ALEVE (CAPLET) [Suspect]
     Indication: ARTHRALGIA
  4. ALEVE (CAPLET) [Suspect]
     Indication: TENDON PAIN
  5. ALEVE (CAPLET) [Suspect]
     Indication: PAIN
  6. ALEVE (CAPLET) [Suspect]
     Indication: MYALGIA

REACTIONS (2)
  - ABDOMINAL DISCOMFORT [None]
  - PAIN [None]
